FAERS Safety Report 18300112 (Version 1)
Quarter: 2020Q3

REPORT INFORMATION
  Report Type: Other
  Country: FR (occurrence: FR)
  Receive Date: 20200923
  Receipt Date: 20200923
  Transmission Date: 20201103
  Serious: Yes (Hospitalization)
  Sender: FDA-Public Use
  Company Number: FR-INCYTE CORPORATION-2020IN009019

PATIENT

DRUGS (3)
  1. JAKAVI [Suspect]
     Active Substance: RUXOLITINIB
     Indication: POLYCYTHAEMIA VERA
     Dosage: 2 DF, QD
     Route: 048
     Dates: start: 201902
  2. XAGRID [Concomitant]
     Active Substance: ANAGRELIDE HYDROCHLORIDE
     Indication: PRODUCT USED FOR UNKNOWN INDICATION
     Dosage: UNK
     Route: 048
     Dates: start: 201701, end: 20181112
  3. HYDREA [Suspect]
     Active Substance: HYDROXYUREA
     Indication: POLYCYTHAEMIA VERA
     Dosage: UNK
     Route: 048
     Dates: end: 20200324

REACTIONS (1)
  - Squamous cell carcinoma of skin [Not Recovered/Not Resolved]

NARRATIVE: CASE EVENT DATE: 20200206
